FAERS Safety Report 9103177 (Version 3)
Quarter: 2013Q2

REPORT INFORMATION
  Report Type: Spontaneous
  Country: US (occurrence: US)
  Receive Date: 20130219
  Receipt Date: 20130401
  Transmission Date: 20140414
  Serious: Yes (Disabling, Other)
  Sender: FDA-Public Use
  Company Number: PHEH2013US003699

PATIENT
  Age: 34 Year
  Sex: Female
  Weight: 64.13 kg

DRUGS (2)
  1. GILENYA [Suspect]
     Indication: RELAPSING-REMITTING MULTIPLE SCLEROSIS
     Dosage: 0.5 MG, QD
     Route: 048
     Dates: start: 20110912
  2. SYNTHROID [Concomitant]
     Indication: HYPOTHYROIDISM
     Dosage: 100 UG, QD
     Route: 048

REACTIONS (4)
  - Thyroid cancer metastatic [Unknown]
  - Thyroid neoplasm [Unknown]
  - Thyroid pain [Unknown]
  - Inappropriate schedule of drug administration [Unknown]
